FAERS Safety Report 8508792-7 (Version None)
Quarter: 2012Q3

REPORT INFORMATION
  Report Type: 
  Country: None (occurrence: None)
  Receive Date: 20120713
  Receipt Date: 20120705
  Transmission Date: 20120928
  Serious: Yes (Hospitalization)
  Sender: FDA-Public Use
  Company Number: CA-JNJFOC-20120703182

PATIENT
  Sex: Female
  Weight: 61.5 kg

DRUGS (7)
  1. MULTI-VITAMINS [Concomitant]
     Route: 065
  2. FOSAMAX [Concomitant]
     Dosage: 70 WEEKLY
     Route: 065
  3. LIPITOR [Concomitant]
     Route: 065
  4. REMICADE [Suspect]
     Indication: PRODUCT USED FOR UNKNOWN INDICATION
     Route: 042
     Dates: start: 20100716
  5. ASPIRIN [Concomitant]
     Dosage: 81*1
     Route: 065
  6. ALL OTHER THERAPEUTIC DRUGS [Concomitant]
     Route: 065
  7. PERINDOPRIL ERBUMINE [Concomitant]
     Dosage: 4*1
     Route: 065

REACTIONS (1)
  - ARTERIAL STENOSIS [None]
